FAERS Safety Report 10044338 (Version 6)
Quarter: 2014Q2

REPORT INFORMATION
  Report Type: Spontaneous
  Country: GB (occurrence: None)
  Receive Date: 20140326
  Receipt Date: 20140508
  Transmission Date: 20141212
  Serious: Yes (Death, Other)
  Sender: FDA-Public Use
  Company Number: AUR-APL-2014-03793

PATIENT
  Sex: Female

DRUGS (5)
  1. METFORMIN [Suspect]
     Indication: DIABETES MELLITUS
  2. IBUPROFEN [Suspect]
     Indication: PRODUCT USED FOR UNKNOWN INDICATION
  3. ELIQUIS [Suspect]
     Indication: HIP ARTHROPLASTY
  4. RAMIPRIL (RAMIPRIL) [Concomitant]
  5. NAPROXEN (NAPROXEN) [Concomitant]

REACTIONS (37)
  - Creatinine renal clearance increased [None]
  - Anaemia [None]
  - Peripheral arterial occlusive disease [None]
  - Cardiac failure [None]
  - Gastric ulcer [None]
  - Atrial fibrillation [None]
  - Acute myocardial infarction [None]
  - Aortic valve stenosis [None]
  - Haematemesis [None]
  - International normalised ratio increased [None]
  - Prothrombin level increased [None]
  - Coagulation factor VII level increased [None]
  - Coagulation factor X level increased [None]
  - Skin ulcer [None]
  - Infected skin ulcer [None]
  - Pulmonary oedema [None]
  - Hypotension [None]
  - Syncope [None]
  - Hyperkalaemia [None]
  - Thyroxine increased [None]
  - Coronary artery occlusion [None]
  - Coronary artery stenosis [None]
  - Renal failure [None]
  - Leg amputation [None]
  - Peripheral arterial occlusive disease [None]
  - Condition aggravated [None]
  - Concomitant disease aggravated [None]
  - Infection [None]
  - Drug interaction [None]
  - Hip surgery [None]
  - Knee arthroplasty [None]
  - Hip arthroplasty [None]
  - Post procedural complication [None]
  - Post procedural infection [None]
  - Renal failure [None]
  - Blood pressure decreased [None]
  - Nephropathy toxic [None]
